FAERS Safety Report 13289840 (Version 2)
Quarter: 2017Q2

REPORT INFORMATION
  Report Type: Spontaneous
  Country: US (occurrence: US)
  Receive Date: 20170302
  Receipt Date: 20170601
  Transmission Date: 20170830
  Serious: No
  Sender: FDA-Public Use
  Company Number: US-THE MEDICINES COMPANY-US-MDCO-16-00492

PATIENT
  Age: 71 Year
  Sex: Female

DRUGS (1)
  1. ORBACTIV [Suspect]
     Active Substance: ORITAVANCIN
     Indication: CELLULITIS
     Dosage: NOT REPORTED
     Route: 041
     Dates: start: 20161114

REACTIONS (2)
  - Pruritus generalised [Recovered/Resolved]
  - Urticaria [Recovering/Resolving]

NARRATIVE: CASE EVENT DATE: 20161114
